FAERS Safety Report 8491695-4 (Version None)
Quarter: 2012Q3

REPORT INFORMATION
  Report Type: 
  Country: None (occurrence: None)
  Receive Date: 20120706
  Receipt Date: 20120703
  Transmission Date: 20120928
  Serious: Yes (Other)
  Sender: FDA-Public Use
  Company Number: US-BAYER-2012-066754

PATIENT
  Sex: Female

DRUGS (3)
  1. ESTRACE [Concomitant]
     Indication: VAGINAL HAEMORRHAGE
     Dosage: 1 MG, UNK
  2. ESTRACE [Concomitant]
     Indication: INFERTILITY
  3. MIRENA [Suspect]
     Indication: VAGINAL HAEMORRHAGE
     Dosage: 20 MCG/24HR, CONT
     Route: 015
     Dates: start: 20120101

REACTIONS (2)
  - OEDEMA PERIPHERAL [None]
  - VAGINAL HAEMORRHAGE [None]
